FAERS Safety Report 17517072 (Version 1)
Quarter: 2020Q1

REPORT INFORMATION
  Report Type: Spontaneous
  Country: US (occurrence: US)
  Receive Date: 20200306
  Receipt Date: 20200306
  Transmission Date: 20200409
  Serious: Yes (Life-Threatening, Hospitalization, Disabling)
  Sender: FDA-Public Use
  Company Number: None

PATIENT
  Age: 63 Year
  Sex: Male
  Weight: 84 kg

DRUGS (4)
  1. ALTEPLASE (ALTEPLASE, RECOMBINANT 100MG/VIL INJ) [Suspect]
     Active Substance: ALTEPLASE
     Indication: VASCULAR OPERATION
     Dosage: ?          OTHER ROUTE:IV?
     Route: 042
     Dates: start: 20190723, end: 20190724
  2. ALTEPLASE (ALTEPLASE, RECOMBINANT 100MG/VIL INJ) [Suspect]
     Active Substance: ALTEPLASE
     Indication: ARTERIAL BYPASS THROMBOSIS
     Dosage: ?          OTHER ROUTE:IV?
     Route: 042
     Dates: start: 20190723, end: 20190724
  3. DEXTROSE/HEPARIN (HEPARIN NA 100UNT/ML/DEXTROSE 5% INJ) [Suspect]
     Active Substance: DEXTROSE\HEPARIN SODIUM
     Indication: VASCULAR OPERATION
     Dosage: ?          OTHER ROUTE:IV?
     Route: 042
     Dates: start: 20190723, end: 20190724
  4. DEXTROSE/HEPARIN (HEPARIN NA 100UNT/ML/DEXTROSE 5% INJ) [Suspect]
     Active Substance: DEXTROSE\HEPARIN SODIUM
     Indication: CATHETER MANAGEMENT
     Dosage: ?          OTHER ROUTE:IV?
     Route: 042
     Dates: start: 20190723, end: 20190724

REACTIONS (5)
  - Cerebrovascular accident [None]
  - Pulmonary haemosiderosis [None]
  - Transient ischaemic attack [None]
  - Subdural haematoma [None]
  - Haemorrhage intracranial [None]

NARRATIVE: CASE EVENT DATE: 20190724
